FAERS Safety Report 15803745 (Version 2)
Quarter: 2020Q3

REPORT INFORMATION
  Report Type: Report from Study
  Country: CZ (occurrence: CZ)
  Receive Date: 20190109
  Receipt Date: 20200710
  Transmission Date: 20201102
  Serious: Yes (Death, Other)
  Sender: FDA-Public Use
  Company Number: CZ-INCYTE CORPORATION-2018IN013328

PATIENT

DRUGS (2)
  1. JAKAVI [Suspect]
     Active Substance: RUXOLITINIB
     Indication: PRODUCT USED FOR UNKNOWN INDICATION
     Dosage: 20 MG, BID
     Route: 065
     Dates: start: 20160609
  2. JAKAVI [Suspect]
     Active Substance: RUXOLITINIB
     Dosage: UNK
     Route: 065
     Dates: end: 20160905

REACTIONS (6)
  - Anaemia [Unknown]
  - Thrombocytopenia [Unknown]
  - Malignant neoplasm progression [Fatal]
  - Therapy non-responder [Unknown]
  - Myeloproliferative neoplasm [Fatal]
  - Primary myelofibrosis [Fatal]

NARRATIVE: CASE EVENT DATE: 20160707
